APPROVED DRUG PRODUCT: PRINCIPEN '500'
Active Ingredient: AMPICILLIN/AMPICILLIN TRIHYDRATE
Strength: EQ 500MG BASE
Dosage Form/Route: CAPSULE;ORAL
Application: N050056 | Product #002
Applicant: APOTHECON SUB BRISTOL MYERS SQUIBB CO
Approved: Approved Prior to Jan 1, 1982 | RLD: Yes | RS: No | Type: DISCN